FAERS Safety Report 22203439 (Version 2)
Quarter: 2023Q2

REPORT INFORMATION
  Report Type: Spontaneous
  Country: ES (occurrence: ES)
  Receive Date: 20230412
  Receipt Date: 20230424
  Transmission Date: 20230721
  Serious: Yes (Hospitalization, Other)
  Sender: FDA-Public Use
  Company Number: ES-BIOVITRUM-2023-ES-008893

PATIENT
  Age: 6 Year
  Sex: Female

DRUGS (1)
  1. ANAKINRA [Suspect]
     Active Substance: ANAKINRA
     Indication: Still^s disease
     Dosage: 2 MG/KG/DAY
     Dates: start: 20151207, end: 20151223

REACTIONS (6)
  - Haemophagocytic lymphohistiocytosis [Unknown]
  - Injection site reaction [Unknown]
  - Pyrexia [Unknown]
  - Skin lesion [Unknown]
  - Muscle rigidity [Unknown]
  - Urinary incontinence [Unknown]
